FAERS Safety Report 11047432 (Version 1)
Quarter: 2015Q2

REPORT INFORMATION
  Report Type: Spontaneous
  Country: US (occurrence: None)
  Receive Date: 20150417
  Receipt Date: 20150417
  Transmission Date: 20150821
  Serious: Yes (Other)
  Sender: FDA-Public Use
  Company Number: None

PATIENT
  Age: 79 Year
  Sex: Female
  Weight: 90.7 kg

DRUGS (13)
  1. SITAGLIPTIN (JANUVIA) [Concomitant]
  2. AMBIEN [Concomitant]
     Active Substance: ZOLPIDEM TARTRATE
  3. PANTOPRAZOLE 40MG [Suspect]
     Active Substance: PANTOPRAZOLE SODIUM
     Indication: GASTROOESOPHAGEAL REFLUX DISEASE
     Route: 048
     Dates: start: 20140814, end: 20150406
  4. APREMILAST (OTEZLA) [Concomitant]
  5. ACCU-CHEK AVIVA STRIPS [Concomitant]
  6. LISINOPRIL (PRINIVIL ZESTRIL) [Concomitant]
  7. PANTOPRAZOLE (PROTONIX) [Concomitant]
  8. PLAVIX [Concomitant]
     Active Substance: CLOPIDOGREL BISULFATE
  9. HYDROCODONE-ACETAMINOPHEN (NORCO 5-325) [Concomitant]
  10. SIMVASTATIN (ZOCOR) [Concomitant]
  11. LEVOTHYROXINE (SYNTROID, LEVOTHROID) [Concomitant]
  12. CHOLECALCIFEROL, VITAMIN D3 [Concomitant]
  13. FERROUS SULFATE [Concomitant]
     Active Substance: FERROUS SULFATE\FERROUS SULFATE, DRIED

REACTIONS (1)
  - Platelet count decreased [None]

NARRATIVE: CASE EVENT DATE: 20150406
